FAERS Safety Report 5258649-2 (Version None)
Quarter: 2007Q1

REPORT INFORMATION
  Report Type: 
  Country: None (occurrence: None)
  Receive Date: 20070308
  Receipt Date: 20070223
  Transmission Date: 20070707
  Serious: Yes (Other)
  Sender: FDA-Public Use
  Company Number: PHEH2006US01248

PATIENT
  Age: 48 Year
  Sex: Male
  Weight: 81.632 kg

DRUGS (26)
  1. AREDIA [Suspect]
     Indication: METASTASES TO BONE
     Dosage: MONTHLY
     Dates: start: 20031001, end: 20050701
  2. ZOMETA [Suspect]
     Indication: METASTASES TO BONE
     Dosage: MONTHLY
     Dates: start: 20050101, end: 20051101
  3. FOSAMAX [Suspect]
     Dosage: UNK,UNK
     Route: 048
  4. COUMADIN [Concomitant]
     Dosage: 10 MG, QD
  5. TAXOTERE [Concomitant]
     Dosage: WEEKLY
     Route: 042
  6. CASODEX [Concomitant]
     Dosage: 2 TABS QD
  7. LUPRON [Concomitant]
     Indication: PROSTATE CANCER
     Dosage: MONTHLY
  8. LUPRON [Concomitant]
     Dosage: 7.5MG Q2-3 MONTH
     Route: 030
     Dates: start: 20030912
  9. VICODIN [Concomitant]
     Indication: PAIN
     Dosage: 700 MG, QID
  10. VICODIN [Concomitant]
     Dosage: 500/5 Q4H/PRN
     Route: 048
     Dates: start: 20030901
  11. VITAMIN D [Concomitant]
  12. ULTRAM [Concomitant]
  13. FLEXERIL [Concomitant]
  14. ZOCOR [Concomitant]
  15. PRILOSEC [Concomitant]
  16. LISINOPRIL [Concomitant]
  17. CITRACAL + D [Concomitant]
  18. LIDODERM [Concomitant]
  19. HYDROCHLOROTHIAZIDE [Concomitant]
  20. ENOXAPARIN SODIUM [Concomitant]
  21. ADVIL [Concomitant]
  22. NORCO [Concomitant]
     Indication: PAIN
     Dosage: 10/325 MG/ PRN/PO
  23. ATIVAN [Concomitant]
     Dosage: 0.5 MG, BID
     Route: 048
     Dates: start: 20030901
  24. VIOXX [Concomitant]
     Dosage: 25 MG, QD
     Dates: start: 20030901
  25. EMCYT [Concomitant]
     Indication: PROSTATE CANCER
     Dosage: 140 MG X2/TID FOR 14 DAY CYCLE
     Dates: start: 20040216
  26. ETOPOSIDE [Concomitant]
     Indication: PROSTATE CANCER
     Dosage: 5 MG X2/ QD FOR 14 DAY CYCLE
     Dates: start: 20040216

REACTIONS (39)
  - ABSCESS [None]
  - ABSCESS DRAINAGE [None]
  - APHTHOUS STOMATITIS [None]
  - ATELECTASIS [None]
  - BONE DISORDER [None]
  - CALCINOSIS [None]
  - COMPUTERISED TOMOGRAM ABNORMAL [None]
  - DENTAL CARIES [None]
  - GINGIVAL ABSCESS [None]
  - GINGIVAL DISORDER [None]
  - GINGIVAL PAIN [None]
  - HERNIA REPAIR [None]
  - IMPAIRED HEALING [None]
  - INGUINAL HERNIA [None]
  - KYPHOSIS [None]
  - LACRIMATION INCREASED [None]
  - LIPOMA [None]
  - LIPOSARCOMA [None]
  - LOOSE TOOTH [None]
  - MALIGNANT NEOPLASM PROGRESSION [None]
  - MUSCLE MASS [None]
  - NASAL CONGESTION [None]
  - ORAL INFECTION [None]
  - OSTEOARTHRITIS [None]
  - OSTEONECROSIS [None]
  - OSTEOSCLEROSIS [None]
  - PAIN [None]
  - PELVIC PAIN [None]
  - PHARYNGOLARYNGEAL PAIN [None]
  - PNEUMONIA [None]
  - PRIMARY SEQUESTRUM [None]
  - PROSTATIC SPECIFIC ANTIGEN INCREASED [None]
  - RADIATION INJURY [None]
  - RHINITIS ALLERGIC [None]
  - SINUS DISORDER [None]
  - SINUSITIS [None]
  - SPINAL CORD COMPRESSION [None]
  - SWELLING [None]
  - TOOTH EXTRACTION [None]
